FAERS Safety Report 8317034-7 (Version None)
Quarter: 2012Q2

REPORT INFORMATION
  Report Type: 
  Country: None (occurrence: None)
  Receive Date: 20120427
  Receipt Date: 20120420
  Transmission Date: 20120825
  Serious: Yes (Other)
  Sender: FDA-Public Use
  Company Number: DE-PFIZER INC-2012099010

PATIENT
  Age: 21 Year
  Sex: Female

DRUGS (2)
  1. AVELOX [Concomitant]
     Indication: MYCOBACTERIUM ABSCESSUS INFECTION
     Dosage: 400 MG, DAILY
     Route: 048
     Dates: start: 20110429
  2. AZITHROMYCIN [Suspect]
     Indication: MYCOBACTERIUM ABSCESSUS INFECTION
     Dosage: 500 MG, DAILY
     Route: 048
     Dates: start: 20110429

REACTIONS (2)
  - AGEUSIA [None]
  - ANOSMIA [None]
